FAERS Safety Report 25060551 (Version 1)
Quarter: 2025Q1

REPORT INFORMATION
  Report Type: Spontaneous
  Country: US (occurrence: US)
  Receive Date: 20250310
  Receipt Date: 20250310
  Transmission Date: 20250408
  Serious: Yes (Hospitalization, Other)
  Sender: GLAXOSMITHKLINE
  Company Number: US-GSK-US2025026764

PATIENT
  Age: 84 Year
  Sex: Female

DRUGS (1)
  1. JEMPERLI [Suspect]
     Active Substance: DOSTARLIMAB-GXLY
     Indication: Biopsy endometrium
     Dosage: 500 MG, Q3W

REACTIONS (2)
  - Adrenal insufficiency [Recovering/Resolving]
  - Product use in unapproved indication [Unknown]
